FAERS Safety Report 24075185 (Version 2)
Quarter: 2024Q3

REPORT INFORMATION
  Report Type: Report from Study
  Country: CA (occurrence: CA)
  Receive Date: 20240710
  Receipt Date: 20240722
  Transmission Date: 20241016
  Serious: Yes (Other)
  Sender: JOHNSON AND JOHNSON
  Company Number: CA-JNJFOC-20240648144

PATIENT
  Age: 6 Decade
  Sex: Female
  Weight: 102 kg

DRUGS (1)
  1. REMICADE [Suspect]
     Active Substance: INFLIXIMAB
     Indication: Sjogren^s syndrome
     Route: 041
     Dates: start: 20131127

REACTIONS (5)
  - Autoimmune eye disorder [Not Recovered/Not Resolved]
  - Eye infection fungal [Not Recovered/Not Resolved]
  - Conjunctivitis [Recovering/Resolving]
  - Sinusitis [Unknown]
  - Human metapneumovirus test positive [Recovering/Resolving]

NARRATIVE: CASE EVENT DATE: 20240101
